FAERS Safety Report 6595454-9 (Version None)
Quarter: 2010Q1

REPORT INFORMATION
  Report Type: 
  Country: None (occurrence: None)
  Receive Date: 20100223
  Receipt Date: 20100217
  Transmission Date: 20100710
  Serious: Yes (Hospitalization, Other)
  Sender: FDA-Public Use
  Company Number: US-BAYER-201014511NA

PATIENT
  Sex: Female

DRUGS (2)
  1. YASMIN [Suspect]
     Indication: DRUG USE FOR UNKNOWN INDICATION
     Route: 048
     Dates: start: 20040701
  2. OCELLA [Suspect]
     Indication: DRUG USE FOR UNKNOWN INDICATION
     Route: 048
     Dates: start: 20081201, end: 20090915

REACTIONS (2)
  - EMBOLISM VENOUS [None]
  - PULMONARY EMBOLISM [None]
